FAERS Safety Report 7950755-4 (Version None)
Quarter: 2011Q4

REPORT INFORMATION
  Report Type: 
  Country: None (occurrence: None)
  Receive Date: 20111201
  Receipt Date: 20111130
  Transmission Date: 20120403
  Serious: Yes (Life-Threatening)
  Sender: FDA-Public Use
  Company Number: JP-BAYER-2011-115190

PATIENT
  Age: 69 Year
  Sex: Male
  Weight: 83 kg

DRUGS (9)
  1. URSO 250 [Concomitant]
     Dosage: 60 MG, QD
     Route: 048
  2. NEXAVAR [Suspect]
     Indication: HEPATIC NEOPLASM MALIGNANT
     Dosage: 800 MG, QD
     Route: 048
     Dates: start: 20111011, end: 20111019
  3. FUROSEMIDE [Concomitant]
     Dosage: 40 MG, QD
     Route: 048
  4. FINASTERIDE [Concomitant]
     Dosage: 4.74 G, QD
     Route: 048
  5. NEXAVAR [Suspect]
     Dosage: 400 MG, QD
     Route: 048
     Dates: start: 20111025
  6. METHISTA [Concomitant]
     Dosage: 1500 MG, QD
     Route: 048
  7. PIROLACTON [Concomitant]
     Dosage: 50 MG, QD
     Route: 048
  8. GLYCYRON [GLYCYRRHIZIC ACID] [Concomitant]
     Dosage: 150 MG, QD
     Route: 048
  9. AMINOLEBAN EN [Concomitant]
     Dosage: 150 G, QD
     Route: 048

REACTIONS (1)
  - HEPATIC FUNCTION ABNORMAL [None]
